FAERS Safety Report 8941748 (Version 5)
Quarter: 2013Q1

REPORT INFORMATION
  Report Type: Spontaneous
  Country: US (occurrence: US)
  Receive Date: 20121203
  Receipt Date: 20130122
  Transmission Date: 20140127
  Serious: Yes (Hospitalization)
  Sender: FDA-Public Use
  Company Number: PHEH2012US023266

PATIENT
  Sex: Female

DRUGS (6)
  1. DIOVAN [Suspect]
     Dosage: 320 MG, UNK
     Route: 048
  2. TOPROL XL [Concomitant]
  3. LANOXIN [Concomitant]
  4. LIVALO [Concomitant]
  5. COUMADIN ^BOOTS^ [Concomitant]
  6. NORVASC [Concomitant]

REACTIONS (10)
  - Pneumonia [Unknown]
  - Bronchitis [Unknown]
  - Wheezing [Unknown]
  - Pyrexia [Unknown]
  - Vomiting [Unknown]
  - Leukocytosis [Unknown]
  - Memory impairment [Unknown]
  - White blood cell count increased [Unknown]
  - Hypertension [Unknown]
  - Diarrhoea [Unknown]
